FAERS Safety Report 4622654-7 (Version None)
Quarter: 2005Q1

REPORT INFORMATION
  Report Type: 
  Country: None (occurrence: None)
  Receive Date: 20050328
  Receipt Date: 20050328
  Transmission Date: 20050727
  Serious: No
  Sender: FDA-Public Use
  Company Number: None

PATIENT
  Age: 7 Year
  Sex: Male
  Weight: 3.6 kg

DRUGS (2)
  1. MILRINONE [Suspect]
     Indication: SURGERY
     Dosage: 1 MCG/KG/MIN
  2. MILRINONE [Suspect]
     Indication: TRANSPOSITION OF THE GREAT VESSELS
     Dosage: 1 MCG/KG/MIN

REACTIONS (2)
  - NEONATAL DISORDER [None]
  - PROCEDURAL HYPERTENSION [None]
